FAERS Safety Report 9748523 (Version 1)
Quarter: 2013Q4

REPORT INFORMATION
  Report Type: Spontaneous
  Country: FR (occurrence: FR)
  Receive Date: 20131212
  Receipt Date: 20131212
  Transmission Date: 20140711
  Serious: Yes (Other)
  Sender: FDA-Public Use
  Company Number: FR-BRISTOL-MYERS SQUIBB COMPANY-19887066

PATIENT
  Sex: Male

DRUGS (2)
  1. ABILIFY TABS [Suspect]
     Route: 048
  2. TERALITHE [Concomitant]
     Route: 048

REACTIONS (1)
  - Infertility [Unknown]
